FAERS Safety Report 21859591 (Version 1)
Quarter: 2023Q1

REPORT INFORMATION
  Report Type: Spontaneous
  Country: US (occurrence: US)
  Receive Date: 20230113
  Receipt Date: 20230113
  Transmission Date: 20230418
  Serious: Yes (Other)
  Sender: FDA-Public Use
  Company Number: US-Shilpa Medicare Limited-SML-US-2023-00041

PATIENT

DRUGS (4)
  1. GEMCITABINE [Suspect]
     Active Substance: GEMCITABINE
     Indication: Pancreatic carcinoma
  2. DURVALUMAB [Suspect]
     Active Substance: DURVALUMAB
     Indication: Pancreatic carcinoma
  3. PACLITAXEL [Suspect]
     Active Substance: PACLITAXEL
     Indication: Pancreatic carcinoma
  4. OLECLUMAB [Suspect]
     Active Substance: OLECLUMAB
     Indication: Pancreatic carcinoma

REACTIONS (3)
  - Hepatocellular injury [Recovered/Resolved]
  - Neoplasm progression [Unknown]
  - Drug ineffective [Unknown]
